FAERS Safety Report 20515988 (Version 3)
Quarter: 2022Q2

REPORT INFORMATION
  Report Type: Spontaneous
  Country: AU (occurrence: AU)
  Receive Date: 20220225
  Receipt Date: 20220405
  Transmission Date: 20220721
  Serious: Yes (Hospitalization, Other)
  Sender: FDA-Public Use
  Company Number: AU-SA-SAC20220203000726

PATIENT
  Age: 65 Year
  Sex: Male

DRUGS (21)
  1. LIBTAYO [Suspect]
     Active Substance: CEMIPLIMAB-RWLC
     Indication: Skin cancer
     Dosage: 350 MG, Q3W
     Route: 042
     Dates: start: 20220117, end: 20220131
  2. INDOCID                            /00003805/ [Concomitant]
     Indication: Pain
     Dosage: 100 MG, BID
     Route: 048
  3. INDOCID                            /00003805/ [Concomitant]
     Indication: Inflammation
  4. INDOCID                            /00003805/ [Concomitant]
     Indication: Pyrexia
  5. ASPIRIN                            /00002701/ [Concomitant]
     Indication: Prophylaxis
     Dosage: 100 MG, QD
     Route: 048
  6. INDAPAMIDE\PERINDOPRIL ERBUMINE [Concomitant]
     Active Substance: INDAPAMIDE\PERINDOPRIL ERBUMINE
     Indication: Hypertension
     Dosage: 5/1.25 MG ,QD
     Route: 048
  7. ESOMEPRAZOLE [Concomitant]
     Active Substance: ESOMEPRAZOLE
     Indication: Gastrooesophageal reflux disease
     Dosage: 20 MG, QD
     Route: 048
  8. ZOPICLONE [Concomitant]
     Active Substance: ZOPICLONE
     Indication: Insomnia
     Dosage: 7.5 MG, PRN
     Route: 048
  9. PREDNISONE [Concomitant]
     Active Substance: PREDNISONE
     Indication: Pain
     Dosage: 7.5 MG
  10. MORPHINE [Concomitant]
     Active Substance: MORPHINE
     Indication: Product used for unknown indication
     Dosage: 20 MG, BID
  11. CHLORAMPHENICOL AD-DRUGSTEL PHARM [Concomitant]
     Indication: Eye infection
     Dosage: 0.5 ML, QID
  12. DEXTRAN-70 NA CL [Concomitant]
     Indication: Product used for unknown indication
     Dosage: 0.4 ML, QID
  13. DEXTRAN 70 W/GLYCEROL/HYPROMELLOSE [Concomitant]
     Indication: Product used for unknown indication
     Dosage: 0.4 ML, QID
  14. MACROGOL 3350 W/MAGNESIUM SULFATE/POTASSIUM C [Concomitant]
     Indication: Constipation
     Dosage: 13.8 G, BID
  15. METOCLOPRAMIDE [Concomitant]
     Active Substance: METOCLOPRAMIDE
     Indication: Product used for unknown indication
     Dosage: 10 MG, TID
  16. PREDNISOLONE SODIUM PHOSPHATE [Concomitant]
     Active Substance: PREDNISOLONE SODIUM PHOSPHATE
     Indication: Eye infection
     Dosage: 0.5 ML, BID
  17. PREDNISOLONE [Concomitant]
     Active Substance: PREDNISOLONE
     Indication: Inflammation
     Dosage: 5 MG
  18. PREDNISOLONE [Concomitant]
     Active Substance: PREDNISOLONE
     Dosage: 25 MG
  19. METOCLOPRAMIDE [Concomitant]
     Active Substance: METOCLOPRAMIDE
     Indication: Nausea
     Dosage: 10 MG, TID
  20. MTX                                /00113801/ [Concomitant]
     Indication: Rheumatoid arthritis
  21. OXYCONTIN [Concomitant]
     Active Substance: OXYCODONE HYDROCHLORIDE
     Indication: Product used for unknown indication

REACTIONS (10)
  - Rheumatoid arthritis [Unknown]
  - Oedema peripheral [Unknown]
  - Pain [Unknown]
  - Synovial cyst [Unknown]
  - Rheumatic disorder [Unknown]
  - Nausea [Unknown]
  - Vomiting [Unknown]
  - Arthralgia [Recovering/Resolving]
  - Arthralgia [Unknown]
  - Pain [Recovering/Resolving]

NARRATIVE: CASE EVENT DATE: 20220125
